FAERS Safety Report 10660882 (Version 1)
Quarter: 2014Q4

REPORT INFORMATION
  Report Type: Report from Study
  Country: NL (occurrence: NL)
  Receive Date: 20141218
  Receipt Date: 20141218
  Transmission Date: 20150529
  Serious: Yes (Other)
  Sender: FDA-Public Use
  Company Number: NL-AMGEN-NLDSL2014097045

PATIENT
  Age: 25 Year
  Sex: Male

DRUGS (2)
  1. NPLATE [Suspect]
     Active Substance: ROMIPLOSTIM
     Indication: PRODUCT USED FOR UNKNOWN INDICATION
     Dosage: 1.16 ML, 2 TIMES/WK
     Route: 058
     Dates: start: 201408
  2. NPLATE [Suspect]
     Active Substance: ROMIPLOSTIM
     Route: 058

REACTIONS (2)
  - Lymphadenopathy [Unknown]
  - Platelet count decreased [Not Recovered/Not Resolved]
